FAERS Safety Report 20492813 (Version 2)
Quarter: 2022Q2

REPORT INFORMATION
  Report Type: Report from Study
  Country: GB (occurrence: GB)
  Receive Date: 20220219
  Receipt Date: 20220528
  Transmission Date: 20220720
  Serious: No
  Sender: FDA-Public Use
  Company Number: GB-NOVARTISPH-NVSC2022GB037441

PATIENT
  Age: 41 Year
  Sex: Female
  Weight: 76 kg

DRUGS (1)
  1. COSENTYX [Suspect]
     Active Substance: SECUKINUMAB
     Indication: Psoriasis
     Dosage: 300 MG, QMO
     Route: 065
     Dates: start: 20190104

REACTIONS (1)
  - COVID-19 [Recovered/Resolved]

NARRATIVE: CASE EVENT DATE: 20210710
